FAERS Safety Report 15035876 (Version 2)
Quarter: 2020Q1

REPORT INFORMATION
  Report Type: Report from Study
  Country: US (occurrence: US)
  Receive Date: 20180620
  Receipt Date: 20200211
  Transmission Date: 20200409
  Serious: Yes (Life-Threatening, Hospitalization)
  Sender: FDA-Public Use
  Company Number: PHEH2018US022633

PATIENT
  Sex: Female

DRUGS (2)
  1. COSENTYX [Suspect]
     Active Substance: SECUKINUMAB
     Indication: PSORIATIC ARTHROPATHY
  2. COSENTYX [Suspect]
     Active Substance: SECUKINUMAB
     Indication: PSORIASIS
     Dosage: UNK UNK, QMO
     Route: 065

REACTIONS (8)
  - Pain [Unknown]
  - Arthralgia [Not Recovered/Not Resolved]
  - Maternal exposure during pregnancy [Unknown]
  - Pyrexia [Unknown]
  - Drug ineffective [Unknown]
  - Malaise [Unknown]
  - High risk pregnancy [Unknown]
  - Chills [Unknown]
